FAERS Safety Report 5108765-0 (Version None)
Quarter: 2006Q3

REPORT INFORMATION
  Report Type: 
  Country: None (occurrence: None)
  Receive Date: 20060918
  Receipt Date: 20060803
  Transmission Date: 20061208
  Serious: Yes (Hospitalization, Other)
  Sender: FDA-Public Use
  Company Number: 2006106915

PATIENT
  Age: 74 Year
  Sex: Male

DRUGS (1)
  1. BEXTRA [Suspect]
     Indication: JOINT SWELLING
     Dosage: 10 MG (10 MG, 1 IN 1 D),
     Dates: start: 20040526

REACTIONS (2)
  - CEREBRAL ISCHAEMIA [None]
  - CEREBROVASCULAR ACCIDENT [None]
